FAERS Safety Report 4555926-5 (Version None)
Quarter: 2005Q1

REPORT INFORMATION
  Report Type: 
  Country: None (occurrence: None)
  Receive Date: 20050111
  Receipt Date: 20040226
  Transmission Date: 20050727
  Serious: No
  Sender: FDA-Public Use
  Company Number: 04P-163-0251603

PATIENT
  Sex: Male

DRUGS (1)
  1. NIMBEX [Suspect]
     Indication: MUSCLE RELAXANT THERAPY
     Dosage: 20 MILLIGRAM/MILLILITERS, ONCE, INTRAVENOUS
     Route: 042
     Dates: start: 20031204, end: 20031204

REACTIONS (2)
  - MEDICATION ERROR [None]
  - OVERDOSE [None]
